FAERS Safety Report 5319374-2 (Version None)
Quarter: 2007Q2

REPORT INFORMATION
  Report Type: 
  Country: None (occurrence: None)
  Receive Date: 20070508
  Receipt Date: 20070430
  Transmission Date: 20071010
  Serious: Yes (Death)
  Sender: FDA-Public Use
  Company Number: US-ELI_LILLY_AND_COMPANY-US200705000137

PATIENT
  Age: 46 Year
  Sex: Female

DRUGS (2)
  1. BYETTA [Suspect]
     Dosage: 5 UG, UNK
     Dates: start: 20060701, end: 20060919
  2. INSULIN [Concomitant]

REACTIONS (1)
  - DEATH [None]
